FAERS Safety Report 5234881-9 (Version None)
Quarter: 2007Q1

REPORT INFORMATION
  Report Type: 
  Country: None (occurrence: None)
  Receive Date: 20070209
  Receipt Date: 20070130
  Transmission Date: 20070707
  Serious: Yes (Other)
  Sender: FDA-Public Use
  Company Number: US-PFIZER INC-2007008460

PATIENT
  Sex: Male

DRUGS (3)
  1. CHANTIX [Suspect]
  2. LITHIUM CARBONATE [Concomitant]
  3. SEROQUEL [Concomitant]

REACTIONS (4)
  - AVERSION [None]
  - DEPRESSED MOOD [None]
  - FEELING ABNORMAL [None]
  - SUICIDAL IDEATION [None]
